FAERS Safety Report 23097806 (Version 1)
Quarter: 2023Q4

REPORT INFORMATION
  Report Type: Spontaneous
  Country: IR (occurrence: IR)
  Receive Date: 20231023
  Receipt Date: 20231023
  Transmission Date: 20240110
  Serious: Yes (Hospitalization, Other)
  Sender: FDA-Public Use
  Company Number: IR-AMNEAL PHARMACEUTICALS-2023-AMRX-03639

PATIENT
  Age: 19 Year
  Sex: Female

DRUGS (3)
  1. BACLOFEN [Suspect]
     Active Substance: BACLOFEN
     Indication: Product used for unknown indication
     Dosage: 20 TABLETS (25MG)
     Route: 065
  2. VENLAFAXINE [Concomitant]
     Active Substance: VENLAFAXINE HYDROCHLORIDE
     Indication: Product used for unknown indication
     Dosage: 75  MG DAILY
     Route: 065
  3. CLOMIPRAMINE [Concomitant]
     Active Substance: CLOMIPRAMINE
     Indication: Product used for unknown indication
     Dosage: 25  MG DAILY
     Route: 065

REACTIONS (9)
  - Pneumomediastinum [Recovered/Resolved]
  - Atelectasis [Unknown]
  - Toxicity to various agents [Unknown]
  - Suicide attempt [Unknown]
  - Mania [Unknown]
  - Catatonia [Unknown]
  - Logorrhoea [Unknown]
  - Hallucination, visual [Unknown]
  - Agitation [Unknown]
